FAERS Safety Report 5138037-X (Version None)
Quarter: 2006Q4

REPORT INFORMATION
  Report Type: 
  Country: None (occurrence: None)
  Receive Date: 20061030
  Receipt Date: 20060329
  Transmission Date: 20070319
  Serious: No
  Sender: FDA-Public Use
  Company Number: US-GLAXOSMITHKLINE-A0600642A

PATIENT
  Sex: Female

DRUGS (5)
  1. ADVAIR HFA [Suspect]
     Indication: ASTHMA
     Route: 055
  2. ALBUTEROL [Suspect]
     Indication: ASTHMA
     Route: 065
  3. STEROID INJECTION [Suspect]
     Indication: ASTHMA
     Route: 065
  4. SINGULAIR [Suspect]
     Indication: ASTHMA
     Route: 065
  5. QVAR 40 [Suspect]
     Indication: DRUG USE FOR UNKNOWN INDICATION
     Route: 065

REACTIONS (2)
  - DRUG INEFFECTIVE [None]
  - POOR QUALITY SLEEP [None]
